FAERS Safety Report 5669487-0 (Version None)
Quarter: 2008Q1

REPORT INFORMATION
  Report Type: 
  Country: None (occurrence: None)
  Receive Date: 20080312
  Receipt Date: 20080312
  Transmission Date: 20080703
  Serious: Yes (Hospitalization)
  Sender: FDA-Public Use
  Company Number: None

PATIENT
  Age: 43 Year
  Sex: Male
  Weight: 62.1428 kg

DRUGS (1)
  1. CEFAZOLIN [Suspect]
     Indication: PROPHYLAXIS
     Dosage: 1 GM 1 DOSE IV
     Route: 042
     Dates: start: 20080226

REACTIONS (2)
  - ANAPHYLACTIC REACTION [None]
  - PULMONARY OEDEMA [None]
